FAERS Safety Report 7949565-3 (Version None)
Quarter: 2011Q4

REPORT INFORMATION
  Report Type: 
  Country: None (occurrence: None)
  Receive Date: 20111130
  Receipt Date: 20111121
  Transmission Date: 20120403
  Serious: Yes (Other)
  Sender: FDA-Public Use
  Company Number: US-BAYER-2011-113917

PATIENT
  Age: 24 Year
  Sex: Female
  Weight: 72.562 kg

DRUGS (4)
  1. PROTONIX [Concomitant]
  2. YASMIN [Suspect]
     Indication: OVARIAN CYST
  3. YASMIN [Suspect]
     Indication: ORAL CONTRACEPTION
     Dosage: UNK
     Dates: start: 20020101, end: 20060101
  4. CREON [Concomitant]

REACTIONS (6)
  - BILIARY DYSKINESIA [None]
  - CHOLECYSTECTOMY [None]
  - FREQUENT BOWEL MOVEMENTS [None]
  - CHOLECYSTITIS CHRONIC [None]
  - PAIN [None]
  - DISCOMFORT [None]
